FAERS Safety Report 10552048 (Version 1)
Quarter: 2014Q4

REPORT INFORMATION
  Report Type: Spontaneous
  Country: IT (occurrence: IT)
  Receive Date: 20141029
  Receipt Date: 20141029
  Transmission Date: 20150529
  Serious: Yes (Hospitalization)
  Sender: FDA-Public Use
  Company Number: IT-TEVA-516981ISR

PATIENT
  Age: 61 Year
  Sex: Male

DRUGS (2)
  1. CISPLATINO HOSPIRA [Suspect]
     Active Substance: CISPLATIN
     Indication: ANAL CANCER STAGE 0
     Dosage: 200 MILLIGRAM DAILY;
     Route: 042
     Dates: start: 20140618, end: 20140903
  2. FLUOROURACILE TEVA [Suspect]
     Active Substance: FLUOROURACIL
     Indication: ANAL CANCER STAGE 0
     Dosage: 6000 MILLIGRAM DAILY;
     Route: 042
     Dates: start: 20140618, end: 20140908

REACTIONS (1)
  - Enteritis [Recovered/Resolved]

NARRATIVE: CASE EVENT DATE: 20140910
